FAERS Safety Report 7494806-2 (Version None)
Quarter: 2011Q2

REPORT INFORMATION
  Report Type: 
  Country: None (occurrence: None)
  Receive Date: 20110520
  Receipt Date: 20110510
  Transmission Date: 20111010
  Serious: Yes (Other)
  Sender: FDA-Public Use
  Company Number: A0927930A

PATIENT
  Age: 40 Year
  Sex: Female

DRUGS (5)
  1. DULERA TABLET [Suspect]
     Indication: ASTHMA
     Route: 048
     Dates: start: 20110215, end: 20110315
  2. ALBUTEROL [Concomitant]
  3. ADVAIR DISKUS 100/50 [Suspect]
     Indication: OCCUPATIONAL ASTHMA
     Route: 065
  4. SINGULAIR [Concomitant]
  5. ZYRTEC [Concomitant]

REACTIONS (4)
  - BLOOD PRESSURE INCREASED [None]
  - DRUG INEFFECTIVE [None]
  - ASTHMA [None]
  - BRONCHIAL HYPERREACTIVITY [None]
